FAERS Safety Report 5005740-1 (Version None)
Quarter: 2006Q2

REPORT INFORMATION
  Report Type: 
  Country: None (occurrence: None)
  Receive Date: 20060515
  Receipt Date: 20060504
  Transmission Date: 20061013
  Serious: Yes (Hospitalization, Other)
  Sender: FDA-Public Use
  Company Number: HQWYE182304MAY06

PATIENT
  Age: 63 Year
  Sex: Female

DRUGS (8)
  1. CORDARONE [Suspect]
     Indication: ATRIAL FIBRILLATION
     Dosage: 200 MG 1X PER 1 DAY, ORAL
     Route: 048
  2. DIGOXIN [Suspect]
     Indication: ATRIAL FIBRILLATION
     Dosage: 0.125 MG; DOSE AND FREQUENCY NOT PROVIDED, ORAL
     Route: 048
     Dates: end: 20060309
  3. LASIX [Suspect]
     Indication: ESSENTIAL HYPERTENSION
     Dosage: SEE IMAGE
     Route: 048
     Dates: end: 20051101
  4. LASIX [Suspect]
     Indication: ESSENTIAL HYPERTENSION
     Dosage: SEE IMAGE
     Route: 048
     Dates: start: 20051101, end: 20060308
  5. LASIX [Suspect]
     Indication: ESSENTIAL HYPERTENSION
     Dosage: SEE IMAGE
     Route: 048
     Dates: start: 20060309
  6. QUINAPRIL HCL [Concomitant]
  7. PREVISCAN (FLUINDIONE) [Concomitant]
  8. FEMARA [Concomitant]

REACTIONS (6)
  - AMNESIA [None]
  - BLOOD POTASSIUM DECREASED [None]
  - DRUG INTERACTION [None]
  - EPILEPSY [None]
  - TORSADE DE POINTES [None]
  - URINARY INCONTINENCE [None]
